FAERS Safety Report 21581273 (Version 2)
Quarter: 2022Q4

REPORT INFORMATION
  Report Type: Other
  Country: AU (occurrence: AU)
  Receive Date: 20221111
  Receipt Date: 20221116
  Transmission Date: 20230113
  Serious: Yes (Other)
  Sender: FDA-Public Use
  Company Number: AU-CELLTRION INC.-2022AU018597

PATIENT

DRUGS (2)
  1. INFLIXIMAB [Suspect]
     Active Substance: INFLIXIMAB
     Indication: Product used for unknown indication
  2. MERCAPTOPURINE [Concomitant]
     Active Substance: MERCAPTOPURINE

REACTIONS (5)
  - Meningitis viral [Unknown]
  - Exposure to communicable disease [Unknown]
  - Poor feeding infant [Unknown]
  - Varicella zoster virus infection [Unknown]
  - Foetal exposure during pregnancy [Unknown]
